FAERS Safety Report 14381784 (Version 1)
Quarter: 2018Q1

REPORT INFORMATION
  Report Type: Other
  Country: FR (occurrence: FR)
  Receive Date: 20180112
  Receipt Date: 20180112
  Transmission Date: 20180509
  Serious: Yes (Disabling)
  Sender: FDA-Public Use
  Company Number: FR-GLENMARK PHARMACEUTICALS-2017GMK030502

PATIENT

DRUGS (33)
  1. MILNACIPRAN [Suspect]
     Active Substance: MILNACIPRAN
     Indication: PANIC ATTACK
     Dosage: 2 DF, UNK
     Route: 065
     Dates: start: 20110322
  2. CLONAZEPAM. [Suspect]
     Active Substance: CLONAZEPAM
     Dosage: UNK, 5-8 DROPS
     Route: 065
     Dates: start: 20110219, end: 20110302
  3. PARACETAMOL [Concomitant]
     Active Substance: ACETAMINOPHEN
     Dosage: 3 DF, OD
     Route: 065
     Dates: start: 20101213
  4. THIOCOLCHICOSIDE [Concomitant]
     Active Substance: THIOCOLCHICOSIDE
     Dosage: 3 DF, UNK
     Route: 065
     Dates: start: 20100606
  5. COLECALCIFEROL [Concomitant]
     Active Substance: CHOLECALCIFEROL
     Indication: PRODUCT USED FOR UNKNOWN INDICATION
     Dosage: 1 DF, UNK
     Route: 065
     Dates: start: 20110219
  6. TEMERIT [Suspect]
     Active Substance: NEBIVOLOL
     Dosage: 2 DF, OD
     Route: 048
     Dates: start: 20110718, end: 201207
  7. CLONAZEPAM. [Suspect]
     Active Substance: CLONAZEPAM
     Dosage: 15 GTT, UNK
     Route: 065
     Dates: start: 20110303, end: 20110327
  8. PARACETAMOL [Concomitant]
     Active Substance: ACETAMINOPHEN
     Dosage: 3 DF, OD
     Route: 065
     Dates: start: 20110328
  9. THIOCOLCHICOSIDE [Concomitant]
     Active Substance: THIOCOLCHICOSIDE
     Dosage: 3 DF, UNK
     Route: 065
     Dates: start: 20110201
  10. TETRAZEPAM [Suspect]
     Active Substance: TETRAZEPAM
     Dosage: UNK
     Route: 065
     Dates: start: 20110726
  11. ETIFOXINE [Concomitant]
     Active Substance: ETIFOXINE
     Indication: PRODUCT USED FOR UNKNOWN INDICATION
     Dosage: ()
     Dates: start: 20120327
  12. TETRAZEPAM [Suspect]
     Active Substance: TETRAZEPAM
     Dosage: UNK
     Route: 065
     Dates: start: 20110705
  13. TEMERIT [Suspect]
     Active Substance: NEBIVOLOL
     Dosage: 2 DF, OD
     Route: 048
     Dates: start: 20110510, end: 201207
  14. CLONAZEPAM. [Suspect]
     Active Substance: CLONAZEPAM
     Indication: NECK PAIN
     Dosage: UNK, 5-8 DROPS
     Route: 065
     Dates: start: 20110328
  15. HYDROXYZINE [Suspect]
     Active Substance: HYDROXYZINE HYDROCHLORIDE
     Indication: PRODUCT USED FOR UNKNOWN INDICATION
     Dosage: UNK
     Route: 065
     Dates: start: 20120131
  16. DEXTROPROPOXYPHENE, PARACETAMOL [Suspect]
     Active Substance: ACETAMINOPHEN\PROPOXYPHENE
     Indication: PAIN
     Dosage: 2 DF, UNK
     Route: 065
     Dates: start: 20100606
  17. CLONAZEPAM. [Suspect]
     Active Substance: CLONAZEPAM
     Dosage: ()
     Dates: start: 20110510
  18. PREDNISOLONE. [Concomitant]
     Active Substance: PREDNISOLONE
     Indication: PRODUCT USED FOR UNKNOWN INDICATION
     Dosage: UNK
     Route: 065
     Dates: start: 20110726
  19. IBUPROFEN. [Concomitant]
     Active Substance: IBUPROFEN
     Indication: PRODUCT USED FOR UNKNOWN INDICATION
     Dosage: UNK
     Route: 065
     Dates: start: 20101213
  20. TETRAZEPAM [Suspect]
     Active Substance: TETRAZEPAM
     Indication: PRODUCT USED FOR UNKNOWN INDICATION
     Dosage: UNK
     Route: 065
     Dates: start: 20110228
  21. TEMERIT [Suspect]
     Active Substance: NEBIVOLOL
     Indication: CARDIAC DISORDER
     Dosage: 2 DF, OD
     Route: 048
     Dates: start: 20101115, end: 20110509
  22. PARACETAMOL [Concomitant]
     Active Substance: ACETAMINOPHEN
     Indication: PRODUCT USED FOR UNKNOWN INDICATION
     Dosage: 3 DF, OD
     Route: 065
     Dates: start: 20110201
  23. DIAZEPAM. [Concomitant]
     Active Substance: DIAZEPAM
     Indication: PRODUCT USED FOR UNKNOWN INDICATION
     Dosage: 1 DF, UNK
     Route: 065
     Dates: start: 20101115, end: 20101115
  24. CAFEDRINE HYDROCHLORIDE, THEODRENALINE HYDROCHLORIDE [Concomitant]
     Indication: PRODUCT USED FOR UNKNOWN INDICATION
     Dosage: 2 DF, UNK
     Route: 065
     Dates: start: 20101127
  25. CITALOPRAM HYDROBROMIDE. [Suspect]
     Active Substance: CITALOPRAM HYDROBROMIDE
     Indication: PRODUCT USED FOR UNKNOWN INDICATION
     Dosage: UNK
     Route: 065
     Dates: start: 20110318
  26. PAROXETINE HYDROCHLORIDE. [Suspect]
     Active Substance: PAROXETINE HYDROCHLORIDE
     Indication: PRODUCT USED FOR UNKNOWN INDICATION
     Dosage: 2 TO 3 WEEKS
     Route: 065
     Dates: start: 20110201
  27. CLONAZEPAM. [Suspect]
     Active Substance: CLONAZEPAM
     Dosage: UNK
  28. THIOCOLCHICOSIDE [Concomitant]
     Active Substance: THIOCOLCHICOSIDE
     Dosage: 3 DF, UNK
     Route: 065
     Dates: start: 20101210
  29. CAPTODIAME HYDROCHLORIDE [Concomitant]
     Indication: PRODUCT USED FOR UNKNOWN INDICATION
     Dosage: UNK
     Route: 065
     Dates: start: 20120620
  30. ETHANOLAMINE ACETYLLEUCINATE [Concomitant]
     Indication: PRODUCT USED FOR UNKNOWN INDICATION
     Dosage: 3 DF, UNK
     Route: 065
     Dates: start: 20110303
  31. AMITRIPTYLINE HYDROCHLORIDE. [Suspect]
     Active Substance: AMITRIPTYLINE HYDROCHLORIDE
     Indication: NECK PAIN
     Dosage: UNK, 5-8 DROPS
     Route: 065
     Dates: start: 20110219
  32. CLONAZEPAM. [Suspect]
     Active Substance: CLONAZEPAM
     Dosage: ()
     Dates: start: 20110718
  33. THIOCOLCHICOSIDE [Concomitant]
     Active Substance: THIOCOLCHICOSIDE
     Indication: PRODUCT USED FOR UNKNOWN INDICATION
     Dosage: 3 DF, UNK
     Route: 065
     Dates: start: 20101213

REACTIONS (23)
  - Tachycardia [Recovered/Resolved]
  - Panic attack [Recovered/Resolved]
  - Memory impairment [Recovered/Resolved]
  - Visual impairment [Recovered/Resolved]
  - Hypertonia [Unknown]
  - Pain in extremity [Unknown]
  - Tinnitus [Recovered/Resolved]
  - Anxiety [Recovered/Resolved]
  - Erectile dysfunction [Recovering/Resolving]
  - Agoraphobia [Recovered/Resolved]
  - Personal relationship issue [Recovered/Resolved]
  - Neurosis [Recovered/Resolved]
  - Hypoacusis [Recovered/Resolved]
  - Malaise [Recovered/Resolved]
  - Psychotic disorder [Recovered/Resolved]
  - Post-traumatic stress disorder [Recovered/Resolved]
  - Drug intolerance [Recovering/Resolving]
  - Hallucination, auditory [Recovered/Resolved]
  - Asthenia [Unknown]
  - Musculoskeletal pain [Unknown]
  - Intervertebral disc disorder [Unknown]
  - Dyspnoea [Unknown]
  - Suicidal ideation [Recovered/Resolved]

NARRATIVE: CASE EVENT DATE: 2010
